FAERS Safety Report 14755729 (Version 2)
Quarter: 2018Q2

REPORT INFORMATION
  Report Type: Spontaneous
  Country: US (occurrence: US)
  Receive Date: 20180413
  Receipt Date: 20180628
  Transmission Date: 20180711
  Serious: No
  Sender: FDA-Public Use
  Company Number: US-PFIZER INC-2018145994

PATIENT
  Age: 39 Year
  Sex: Female
  Weight: 82.55 kg

DRUGS (8)
  1. CYMBALTA [Concomitant]
     Active Substance: DULOXETINE HYDROCHLORIDE
     Indication: COMPLEX REGIONAL PAIN SYNDROME
     Dosage: UNK
     Dates: start: 201711
  2. CYMBALTA [Concomitant]
     Active Substance: DULOXETINE HYDROCHLORIDE
     Indication: NEURALGIA
     Dosage: 90 MG, UNK (A 60 MG CAPSULE AND 30 MG CAPSULE)
     Dates: start: 2016
  3. LYRICA [Suspect]
     Active Substance: PREGABALIN
     Dosage: 50 MG, UNK
  4. TRAMADOL. [Concomitant]
     Active Substance: TRAMADOL
     Dosage: 2 DF, DAILY
  5. LYRICA [Suspect]
     Active Substance: PREGABALIN
     Indication: COMPLEX REGIONAL PAIN SYNDROME
     Dosage: 50 MG, 1X/DAY(50 MG ONCE AT BEDTIME)
     Route: 048
     Dates: start: 20180323
  6. LYRICA [Suspect]
     Active Substance: PREGABALIN
     Dosage: 50 MG, 2X/DAY(50 MG IN THE MORNING AND 50 MG AT BEDTIME)
  7. TRAMADOL. [Concomitant]
     Active Substance: TRAMADOL
     Indication: COMPLEX REGIONAL PAIN SYNDROME
     Dosage: 50 MG, AS NEEDED
  8. TRAMADOL. [Concomitant]
     Active Substance: TRAMADOL
     Dosage: UNK
     Dates: start: 2017

REACTIONS (2)
  - Drug ineffective for unapproved indication [Unknown]
  - Intentional product use issue [Unknown]

NARRATIVE: CASE EVENT DATE: 20180323
